FAERS Safety Report 7948335-X (Version None)
Quarter: 2011Q4

REPORT INFORMATION
  Report Type: 
  Country: None (occurrence: None)
  Receive Date: 20111130
  Receipt Date: 20111123
  Transmission Date: 20120403
  Serious: Yes (Hospitalization)
  Sender: FDA-Public Use
  Company Number: NL-AMGEN-NLDSP2011062214

PATIENT
  Sex: Female

DRUGS (8)
  1. PREDNISONE TAB [Suspect]
     Indication: DIFFUSE LARGE B-CELL LYMPHOMA
     Dosage: 50 ABSENT, BID
     Route: 048
     Dates: start: 20110530, end: 20110923
  2. DOXORUBICIN HCL [Suspect]
     Indication: DIFFUSE LARGE B-CELL LYMPHOMA
     Dosage: 80 MG, UNK
     Route: 042
     Dates: start: 20110530, end: 20110919
  3. COTRIMOXIN [Concomitant]
     Dosage: 400 ABSENT, UNK
     Dates: start: 20110530
  4. VALACICLOVIR [Concomitant]
     Indication: PROPHYLAXIS
     Dosage: 500 ABSENT, BID
     Route: 048
     Dates: start: 20110530
  5. CYCLOPHOSPHAMIDE [Suspect]
     Indication: DIFFUSE LARGE B-CELL LYMPHOMA
     Dosage: 1300 MG, UNK
     Route: 042
     Dates: start: 20110530, end: 20110919
  6. VINCRISTINE [Suspect]
     Indication: DIFFUSE LARGE B-CELL LYMPHOMA
     Dosage: 90 MG, UNK
     Route: 042
     Dates: start: 20110530, end: 20110919
  7. NEUPOGEN [Suspect]
     Indication: DIFFUSE LARGE B-CELL LYMPHOMA
     Dosage: 6 MG, UNK
     Route: 058
     Dates: start: 20110531, end: 20110901
  8. RITUXIMAB [Suspect]
     Indication: DIFFUSE LARGE B-CELL LYMPHOMA
     Dosage: 650 MG, UNK
     Route: 042
     Dates: start: 20110530, end: 20110919

REACTIONS (1)
  - CARDIOMYOPATHY [None]
